FAERS Safety Report 24534658 (Version 2)
Quarter: 2024Q4

REPORT INFORMATION
  Report Type: Spontaneous
  Country: US (occurrence: US)
  Receive Date: 20241022
  Receipt Date: 20241108
  Transmission Date: 20250115
  Serious: Yes (Death, Other)
  Sender: FRESENIUS KABI
  Company Number: US-FreseniusKabi-FK202415310

PATIENT
  Age: 78 Year
  Sex: Female
  Weight: 65 kg

DRUGS (15)
  1. MESNA [Suspect]
     Active Substance: MESNA
     Indication: Product used for unknown indication
     Dosage: FREQUENCY: CYCLIC?CYCLES 1, 3, 5, 7: 300 MG/M2, SCHEDULE: DAYS 1-3
  2. INOTUZUMAB OZOGAMICIN [Suspect]
     Active Substance: INOTUZUMAB OZOGAMICIN
     Indication: B-cell type acute leukaemia
     Dosage: FREQUENCY: CYCLIC?CYCLE 1 SCHEDULE: 0.6 MG/M2 D2, 0.3 MG/M2 D8 (TOTAL 0.9 MG/M2)?FIRST REGIMEN FROM
     Route: 042
     Dates: start: 20240125
  3. INOTUZUMAB OZOGAMICIN [Suspect]
     Active Substance: INOTUZUMAB OZOGAMICIN
     Dosage: FREQUENCY: CYCLIC?CYCLE 2-4 SCHEDULE 0.3 MG/M2 D2, D8(TOTAL 0.6MG/M2), RECEIVED ONLY ONE DOSE THIS C
     Route: 042
     Dates: start: 20240227, end: 20240227
  4. CYTARABINE [Suspect]
     Active Substance: CYTARABINE
     Indication: B-cell type acute leukaemia
     Dosage: FREQUENCY: CYCLIC?CYCLES 1-4: 100 MG, SCHEDULE: DAY 2, 8
     Route: 037
     Dates: start: 20240217, end: 20240217
  5. CYTARABINE [Suspect]
     Active Substance: CYTARABINE
     Dosage: 500 MG/M2 CYCLIC?CYCLES 2: 0.5MG/M^2/DOSE, SCHEDULE: EVERY 12HRS X4 DOSE, DAYS 2 AND 3?18FEB2024 AT
     Route: 042
     Dates: start: 20240218, end: 20240218
  6. CYTARABINE [Suspect]
     Active Substance: CYTARABINE
     Dosage: 500 MG/M2 CYCLIC?CYCLES 2: 0.5MG/M^2/DOSE, SCHEDULE: EVERY 12HRS X4 DOSE, DAYS 2 AND 3?19/FEB/2024 A
     Route: 042
     Dates: start: 20240219, end: 20240219
  7. CYTARABINE [Suspect]
     Active Substance: CYTARABINE
     Dosage: 500 MG/M2 CYCLIC?CYCLES 2: 0.5MG/M^2/DOSE, SCHEDULE: EVERY 12HRS X4 DOSE, DAYS 2 AND 3?19/FEB/2024 A
     Route: 042
     Dates: start: 20240219, end: 20240219
  8. CYTARABINE [Suspect]
     Active Substance: CYTARABINE
     Dosage: 500 MG/M2 CYCLIC?CYCLES 2: 0.5MG/M^2/DOSE, SCHEDULE: EVERY 12HRS X4 DOSE, DAYS 2 AND 3?20/FEB/2024 A
     Route: 042
     Dates: start: 20240220, end: 20240220
  9. METHOTREXATE SODIUM [Suspect]
     Active Substance: METHOTREXATE SODIUM
     Indication: B-cell type acute leukaemia
     Dosage: FREQUENCY: CYCLIC ?CYCLES 1-4: 12 MG, SCHEDULE: DAY 2, 8
     Route: 037
     Dates: start: 20240126, end: 20240126
  10. METHOTREXATE SODIUM [Suspect]
     Active Substance: METHOTREXATE SODIUM
     Dosage: FREQUENCY: CYCLIC?CYCLES 2, 4, 6, 8: 250 MG/M2, SCHEDULE: DAY 1
     Route: 042
     Dates: start: 20240217, end: 20240217
  11. METHYLPREDNISOLONE SODIUM SUCCINATE [Suspect]
     Active Substance: METHYLPREDNISOLONE SODIUM SUCCINATE
     Indication: B-cell type acute leukaemia
     Dosage: FREQUENCY: CYCLIC?CYCLES 2, 4, 6, 8: 50 MG, SCHEDULE: EVERY 12 HRS X 6 DOSES, DAYS 1-3?POWDER FOR SO
     Route: 042
  12. RITUXIMAB [Suspect]
     Active Substance: RITUXIMAB
     Indication: B-cell type acute leukaemia
     Dosage: FREQUENCY: CYCLIC?CYCLES 1-4: 375 MG/M2, SCHEDULE: DAY 2, 8
     Route: 042
  13. VINCRISTINE SULFATE [Suspect]
     Active Substance: VINCRISTINE SULFATE
     Indication: B-cell type acute leukaemia
     Dosage: FREQUENCY: CYCLIC?CYCLES 1, 3, 5, 7: 2 MG, SCHEDULE: DAY 1, 8
     Route: 042
  14. CYCLOPHOSPHAMIDE [Suspect]
     Active Substance: CYCLOPHOSPHAMIDE
     Indication: Product used for unknown indication
     Dosage: FREQUENCY: CYCLIC?CYCLES 1, 3, 5, 7: 150 MG/M2, SCHEDULE: EVERY 12 HRS X 6 DOSES, DAYS 1-3
     Route: 042
  15. DEXAMETHASONE [Suspect]
     Active Substance: DEXAMETHASONE
     Indication: Product used for unknown indication
     Dosage: FREQUENCY: CYCLIC?CYCLES 1, 3, 5, 7: 20 MG, IV OR PO, SCHEDULE: DAYS 1-4, DAYS 11-14

REACTIONS (3)
  - Second primary malignancy [Fatal]
  - Acute myeloid leukaemia [Fatal]
  - Death [Fatal]

NARRATIVE: CASE EVENT DATE: 20240524
